FAERS Safety Report 20034298 (Version 1)
Quarter: 2021Q4

REPORT INFORMATION
  Report Type: Report from Study
  Country: US (occurrence: None)
  Receive Date: 20211104
  Receipt Date: 20211104
  Transmission Date: 20220303
  Serious: Yes (Other)
  Sender: FDA-Public Use
  Company Number: 2021A790293

PATIENT
  Age: 814 Month
  Sex: Male

DRUGS (4)
  1. LYNPARZA [Suspect]
     Active Substance: OLAPARIB
     Route: 048
  2. LYNPARZA [Suspect]
     Active Substance: OLAPARIB
     Dosage: HALF DOSE
     Route: 048
     Dates: start: 20211018, end: 20211018
  3. LYNPARZA [Suspect]
     Active Substance: OLAPARIB
     Route: 048
  4. VIMPAT [Concomitant]
     Active Substance: LACOSAMIDE
     Indication: Seizure

REACTIONS (6)
  - Seizure [Unknown]
  - Haemoglobin abnormal [Unknown]
  - Asthenia [Unknown]
  - Fatigue [Unknown]
  - Loss of consciousness [Unknown]
  - Dizziness [Unknown]

NARRATIVE: CASE EVENT DATE: 20191201
